FAERS Safety Report 14214275 (Version 2)
Quarter: 2017Q4

REPORT INFORMATION
  Report Type: Report from Study
  Country: None (occurrence: IT)
  Receive Date: 20171122
  Receipt Date: 20171228
  Transmission Date: 20180321
  Serious: Yes (Death, Hospitalization, Other)
  Sender: FDA-Public Use
  Company Number: IT-ABBVIE-17K-083-2172101-00

PATIENT
  Age: 72 Year
  Sex: Male

DRUGS (1)
  1. DUODOPA [Suspect]
     Active Substance: CARBIDOPA\LEVODOPA
     Indication: PARKINSON^S DISEASE
     Dosage: MD 10,5+3??CR 2,5??ED 3,7
     Route: 050
     Dates: start: 20170308, end: 20171120

REACTIONS (3)
  - Cardiac arrest [Unknown]
  - Duodenal ulcer [Unknown]
  - Post procedural complication [Fatal]

NARRATIVE: CASE EVENT DATE: 2017
